APPROVED DRUG PRODUCT: VERAPAMIL HYDROCHLORIDE
Active Ingredient: VERAPAMIL HYDROCHLORIDE
Strength: 240MG
Dosage Form/Route: TABLET, EXTENDED RELEASE;ORAL
Application: A078906 | Product #001 | TE Code: AB
Applicant: GLENMARK PHARMACEUTICALS LTD
Approved: Sep 17, 2009 | RLD: No | RS: Yes | Type: RX